FAERS Safety Report 5636676-0 (Version None)
Quarter: 2008Q1

REPORT INFORMATION
  Report Type: 
  Country: None (occurrence: None)
  Receive Date: 20080220
  Receipt Date: 20080131
  Transmission Date: 20080703
  Serious: Yes (Life-Threatening)
  Sender: FDA-Public Use
  Company Number: E2090-00362-SPO-JP

PATIENT
  Age: 1 Year
  Sex: Male

DRUGS (8)
  1. ZONISAMIDE [Suspect]
     Dosage: 40 MG, ORAL, 60 MG, ORAL, 50 MG, ORAL, 30 MG, ORAL, 15 MG, ORAL
     Route: 048
     Dates: start: 20070402, end: 20070520
  2. ZONISAMIDE [Suspect]
     Dosage: 40 MG, ORAL, 60 MG, ORAL, 50 MG, ORAL, 30 MG, ORAL, 15 MG, ORAL
     Route: 048
     Dates: start: 20070521, end: 20070605
  3. ZONISAMIDE [Suspect]
     Dosage: 40 MG, ORAL, 60 MG, ORAL, 50 MG, ORAL, 30 MG, ORAL, 15 MG, ORAL
     Route: 048
     Dates: start: 20070606, end: 20070704
  4. ZONISAMIDE [Suspect]
     Dosage: 40 MG, ORAL, 60 MG, ORAL, 50 MG, ORAL, 30 MG, ORAL, 15 MG, ORAL
     Route: 048
     Dates: start: 20070705, end: 20070708
  5. ZONISAMIDE [Suspect]
     Dosage: 40 MG, ORAL, 60 MG, ORAL, 50 MG, ORAL, 30 MG, ORAL, 15 MG, ORAL
     Route: 048
     Dates: start: 20070709, end: 20070712
  6. CLOBAZAM (CLOBAZAM) [Concomitant]
  7. POTASSIUM BROMIDE (POTASSIUM BROMIDE) [Concomitant]
  8. VITAMIN B PREPARATIONS (VITAMIN B) [Concomitant]

REACTIONS (4)
  - APLASIA PURE RED CELL [None]
  - BONE MARROW FAILURE [None]
  - IMMUNOSUPPRESSION [None]
  - NORMOCHROMIC NORMOCYTIC ANAEMIA [None]
